FAERS Safety Report 12406497 (Version 1)
Quarter: 2016Q2

REPORT INFORMATION
  Report Type: Spontaneous
  Country: US (occurrence: US)
  Receive Date: 20160526
  Receipt Date: 20160526
  Transmission Date: 20160815
  Serious: No
  Sender: FDA-Public Use
  Company Number: US-BIOGEN-2016BI00231676

PATIENT
  Sex: Male

DRUGS (1)
  1. AVONEX [Suspect]
     Active Substance: INTERFERON BETA-1A
     Indication: MULTIPLE SCLEROSIS
     Route: 065
     Dates: start: 20050621, end: 20060728

REACTIONS (9)
  - Dry mouth [Unknown]
  - Decreased immune responsiveness [Unknown]
  - Feeling abnormal [Unknown]
  - Dysphonia [Unknown]
  - Cardiac disorder [Unknown]
  - Glossodynia [Unknown]
  - Oropharyngeal pain [Unknown]
  - Dyspnoea [Unknown]
  - Pain in extremity [Unknown]
